FAERS Safety Report 7373662-7 (Version None)
Quarter: 2011Q1

REPORT INFORMATION
  Report Type: 
  Country: None (occurrence: None)
  Receive Date: 20110325
  Receipt Date: 20110316
  Transmission Date: 20110831
  Serious: Yes (Hospitalization)
  Sender: FDA-Public Use
  Company Number: US-ELI_LILLY_AND_COMPANY-US201103005050

PATIENT
  Sex: Male
  Weight: 91.61 kg

DRUGS (19)
  1. FUROSEMIDE [Concomitant]
     Dosage: 40 MG, DAILY (1/D)
     Route: 048
  2. BENAZEPRIL [Concomitant]
     Dosage: UNK, 2/D
     Route: 048
  3. MULTI-VITAMIN [Concomitant]
     Route: 048
  4. BYETTA [Suspect]
     Dosage: 10 UG, 2/D
     Route: 058
     Dates: start: 20110225
  5. CIALIS [Concomitant]
  6. GLUCOPHAGE [Concomitant]
     Indication: TYPE 2 DIABETES MELLITUS
     Dosage: 1000 MG, 2/D
     Route: 048
  7. GLIMEPIRIDE [Concomitant]
     Indication: TYPE 2 DIABETES MELLITUS
     Dosage: 4 MG, 2/D
     Route: 048
  8. SIMVASTATIN [Concomitant]
     Dosage: 20 MG, DAILY (1/D)
     Route: 048
  9. FERROUS GLUCONATE [Concomitant]
     Dosage: UNK, DAILY (1/D)
     Route: 048
  10. VITAMIN B-12 [Concomitant]
     Dosage: UNK, DAILY (1/D)
  11. BYETTA [Suspect]
     Dosage: 10 UG, 2/D
     Route: 058
     Dates: end: 20110110
  12. CITRACAL [Concomitant]
     Dosage: UNK, DAILY (1/D)
     Route: 048
  13. ZINC [Concomitant]
     Dosage: UNK, DAILY (1/D)
     Route: 048
  14. BYETTA [Suspect]
     Indication: TYPE 2 DIABETES MELLITUS
     Dosage: 5 UG, 2/D
     Route: 058
  15. ATENOLOL [Concomitant]
     Dosage: 100 MG, DAILY (1/D)
     Route: 048
  16. FELODIPINE [Concomitant]
     Indication: BLOOD PRESSURE
     Dosage: 10 MG, DAILY (1/D)
     Route: 048
  17. CLONIDINE [Concomitant]
     Dosage: 0.3 MG, DAILY (1/D)
     Route: 048
  18. POTASSIUM CHLORIDE [Concomitant]
     Dosage: 20 MEQ, DAILY (1/D)
     Route: 048
  19. ASPIRIN [Concomitant]
     Dosage: 325 MG, DAILY (1/D)
     Route: 048

REACTIONS (8)
  - CARDIAC VALVE DISEASE [None]
  - CORONARY ARTERY BYPASS [None]
  - OFF LABEL USE [None]
  - BLOOD GLUCOSE DECREASED [None]
  - BLOOD GLUCOSE INCREASED [None]
  - BLOOD GLUCOSE ABNORMAL [None]
  - WEIGHT DECREASED [None]
  - BLOOD PRESSURE FLUCTUATION [None]
